FAERS Safety Report 13414809 (Version 1)
Quarter: 2017Q2

REPORT INFORMATION
  Report Type: Spontaneous
  Country: US (occurrence: US)
  Receive Date: 20170407
  Receipt Date: 20170407
  Transmission Date: 20170830
  Serious: No
  Sender: FDA-Public Use
  Company Number: None

PATIENT
  Age: 76 Year
  Sex: Male

DRUGS (2)
  1. SOVALDI [Suspect]
     Active Substance: SOFOSBUVIR
     Indication: HEPATIC CIRRHOSIS
     Dosage: 400 QD ORAL
     Route: 048
  2. SOVALDI [Suspect]
     Active Substance: SOFOSBUVIR
     Indication: CHRONIC HEPATITIS C
     Dosage: 400 QD ORAL
     Route: 048

REACTIONS (6)
  - Asthenia [None]
  - Tremor [None]
  - Dysphonia [None]
  - Dry skin [None]
  - Hepatic pain [None]
  - Confusional state [None]

NARRATIVE: CASE EVENT DATE: 20170317
